FAERS Safety Report 9641805 (Version 1)
Quarter: 2013Q4

REPORT INFORMATION
  Report Type: Spontaneous
  Country: GB (occurrence: None)
  Receive Date: 20131021
  Receipt Date: 20131021
  Transmission Date: 20140711
  Serious: Yes (Disabling, Other)
  Sender: FDA-Public Use
  Company Number: 2006-000864

PATIENT
  Age: 28 Year
  Sex: Male

DRUGS (2)
  1. SARAFEM [Suspect]
     Route: 048
     Dates: start: 200602
  2. ANTIHISTAMINES [Concomitant]

REACTIONS (23)
  - Muscle spasms [None]
  - Akathisia [None]
  - Blood testosterone decreased [None]
  - Apathy [None]
  - Muscle twitching [None]
  - Lethargy [None]
  - Quality of life decreased [None]
  - Loss of libido [None]
  - Suicide attempt [None]
  - Tic [None]
  - Fatigue [None]
  - Anorgasmia [None]
  - Penis disorder [None]
  - Erectile dysfunction [None]
  - Semen volume decreased [None]
  - Memory impairment [None]
  - Dyskinesia [None]
  - Psychotic disorder [None]
  - Cognitive disorder [None]
  - Genital paraesthesia [None]
  - Erectile dysfunction [None]
  - Retrograde ejaculation [None]
  - Cognitive disorder [None]
